FAERS Safety Report 24745902 (Version 3)
Quarter: 2025Q1

REPORT INFORMATION
  Report Type: Report from Study
  Country: US (occurrence: US)
  Receive Date: 20241218
  Receipt Date: 20250305
  Transmission Date: 20250409
  Serious: Yes (Hospitalization)
  Sender: UCB
  Company Number: US-UCBSA-2024054468

PATIENT
  Sex: Female

DRUGS (2)
  1. BIMEKIZUMAB [Suspect]
     Active Substance: BIMEKIZUMAB
     Indication: Psoriasis
     Dosage: 320 MILLIGRAM, EV 4 WEEKS
     Route: 058
     Dates: start: 20241006, end: 20241103
  2. BIMEKIZUMAB [Suspect]
     Active Substance: BIMEKIZUMAB
     Indication: Psoriatic arthropathy

REACTIONS (4)
  - Respiratory syncytial virus infection [Recovered/Resolved]
  - Dehydration [Recovering/Resolving]
  - Mouth ulceration [Recovering/Resolving]
  - Oesophageal disorder [Recovered/Resolved]

NARRATIVE: CASE EVENT DATE: 20240101
